FAERS Safety Report 5948754-7 (Version None)
Quarter: 2008Q4

REPORT INFORMATION
  Report Type: 
  Country: None (occurrence: None)
  Receive Date: 20081111
  Receipt Date: 20081105
  Transmission Date: 20090506
  Serious: Yes (Hospitalization)
  Sender: FDA-Public Use
  Company Number: US-ASTRAZENECA-2008UW24796

PATIENT
  Age: 64 Year
  Sex: Male

DRUGS (1)
  1. CRESTOR [Suspect]
     Indication: BLOOD CHOLESTEROL
     Route: 048

REACTIONS (1)
  - TRANSIENT ISCHAEMIC ATTACK [None]
